FAERS Safety Report 5549815-7 (Version None)
Quarter: 2007Q4

REPORT INFORMATION
  Report Type: 
  Country: None (occurrence: None)
  Receive Date: 20071207
  Receipt Date: 20071207
  Transmission Date: 20080405
  Serious: Yes (Life-Threatening, Hospitalization)
  Sender: FDA-Public Use
  Company Number: None

PATIENT
  Age: 85 Year
  Sex: Male
  Weight: 54.4316 kg

DRUGS (1)
  1. SEROQUEL [Suspect]
     Indication: AGITATION
     Dosage: 25MG QHS PO
     Route: 048
     Dates: start: 20071204, end: 20071204

REACTIONS (4)
  - DEPRESSED LEVEL OF CONSCIOUSNESS [None]
  - NUCHAL RIGIDITY [None]
  - RENAL FAILURE ACUTE [None]
  - RHABDOMYOLYSIS [None]
